FAERS Safety Report 7285148-9 (Version None)
Quarter: 2011Q1

REPORT INFORMATION
  Report Type: 
  Country: None (occurrence: None)
  Receive Date: 20110210
  Receipt Date: 20110208
  Transmission Date: 20110831
  Serious: Yes (Death)
  Sender: FDA-Public Use
  Company Number: PHHY2010US87348

PATIENT
  Sex: Male

DRUGS (3)
  1. EXJADE [Suspect]
     Indication: CHRONIC LYMPHOCYTIC LEUKAEMIA
     Dosage: 4 DF, QD
     Route: 048
  2. EXJADE [Suspect]
     Dosage: 2000 MG,
     Route: 048
  3. REVLIMID [Suspect]
     Indication: CHRONIC LYMPHOCYTIC LEUKAEMIA
     Dosage: 5 MG,
     Route: 048
     Dates: start: 20100901

REACTIONS (1)
  - DEATH [None]
